FAERS Safety Report 15286565 (Version 1)
Quarter: 2018Q4

REPORT INFORMATION
  Report Type: Spontaneous
  Country: US (occurrence: US)
  Receive Date: 20180816
  Receipt Date: 20180816
  Transmission Date: 20190204
  Serious: No
  Sender: FDA-Public Use
  Company Number: US-BAUSCH-BL-2018-000701

PATIENT
  Sex: Male
  Weight: 85.81 kg

DRUGS (6)
  1. ALAWAY [Suspect]
     Active Substance: KETOTIFEN FUMARATE
     Indication: EYE ALLERGY
     Dosage: ONE DROP IN EACH EYE, AS NEEDED
     Route: 047
     Dates: start: 2017
  2. ALAWAY [Suspect]
     Active Substance: KETOTIFEN FUMARATE
     Dosage: ONE DROP IN EACH EYE, AS NEEDED
     Route: 047
     Dates: start: 201712
  3. ALAWAY [Suspect]
     Active Substance: KETOTIFEN FUMARATE
     Dosage: ONE DROP IN EACH EYE, AS NEEDED
     Route: 047
  4. METOPROLOL ER [Concomitant]
     Active Substance: METOPROLOL SUCCINATE
     Indication: PRODUCT USED FOR UNKNOWN INDICATION
  5. ADVANCED EYE RELIEF/ REDNESS MAXIMUM RELIEF [Suspect]
     Active Substance: HYPROMELLOSES\NAPHAZOLINE HYDROCHLORIDE
     Indication: PRODUCT USED FOR UNKNOWN INDICATION
     Dosage: ONE DROP IN EACH EYE, AS NEEDED
     Route: 047
     Dates: start: 20180108
  6. LEVOTHYROXINE. [Concomitant]
     Active Substance: LEVOTHYROXINE
     Indication: PRODUCT USED FOR UNKNOWN INDICATION

REACTIONS (4)
  - Condition aggravated [Recovering/Resolving]
  - Drug ineffective [Recovered/Resolved]
  - Eye pain [Recovering/Resolving]
  - Eyelid oedema [Recovering/Resolving]
